FAERS Safety Report 20231404 (Version 3)
Quarter: 2022Q1

REPORT INFORMATION
  Report Type: Spontaneous
  Country: ES (occurrence: ES)
  Receive Date: 20211227
  Receipt Date: 20220220
  Transmission Date: 20220423
  Serious: Yes (Hospitalization, Other)
  Sender: FDA-Public Use
  Company Number: ES-NOVARTISPH-NVSC2021ES291086

PATIENT
  Age: 66 Year
  Sex: Female
  Weight: 117.5 kg

DRUGS (7)
  1. NEBIVOLOL [Suspect]
     Active Substance: NEBIVOLOL
     Indication: Cardiovascular event prophylaxis
     Dosage: 2.5 MG, QD
     Route: 048
     Dates: start: 20211116
  2. PEMBROLIZUMAB [Suspect]
     Active Substance: PEMBROLIZUMAB
     Indication: Small cell lung cancer
     Dosage: 200 MG (POWDER FOR INJECTION)
     Route: 042
     Dates: start: 20211030, end: 2021
  3. PEMBROLIZUMAB [Suspect]
     Active Substance: PEMBROLIZUMAB
     Dosage: 200 MG, QD (C2)
     Route: 042
     Dates: start: 20211124, end: 2021
  4. DAPAGLIFLOZIN [Suspect]
     Active Substance: DAPAGLIFLOZIN
     Indication: Cardiovascular event prophylaxis
     Dosage: 10 MG, QD
     Route: 048
     Dates: start: 20211116
  5. ENALAPRIL MALEATE [Suspect]
     Active Substance: ENALAPRIL MALEATE
     Indication: Cardiovascular event prophylaxis
     Dosage: 2.5 MG, Q12H (5 MG)
     Route: 048
     Dates: start: 20211116
  6. LURBINECTEDIN [Suspect]
     Active Substance: LURBINECTEDIN
     Indication: Small cell lung cancer
     Dosage: 3.2 MG/M2 (6.4 MILLIGRAM)
     Route: 042
     Dates: start: 20211030, end: 2021
  7. LURBINECTEDIN [Suspect]
     Active Substance: LURBINECTEDIN
     Dosage: 6.4 MG/M2, QD (3.2 MILLIGRAM/SQ. METER, BID (6.4 MILLIGRAM) (C1))
     Route: 042
     Dates: start: 20211102, end: 2021

REACTIONS (2)
  - Renal failure [Recovered/Resolved]
  - Product use in unapproved indication [Unknown]

NARRATIVE: CASE EVENT DATE: 20211116
